FAERS Safety Report 8010464-2 (Version None)
Quarter: 2011Q4

REPORT INFORMATION
  Report Type: 
  Country: None (occurrence: None)
  Receive Date: 20111223
  Receipt Date: 20111223
  Transmission Date: 20120403
  Serious: Yes (Hospitalization, Disabling)
  Sender: FDA-Public Use
  Company Number: None

PATIENT
  Age: 36 Year
  Sex: Male
  Weight: 90.7194 kg

DRUGS (7)
  1. SEROQUEL [Concomitant]
  2. GEODON [Concomitant]
  3. PAXIL [Concomitant]
  4. LEXAPRO [Suspect]
     Indication: ANTIDEPRESSANT THERAPY
     Dosage: 10 MG A DAY 047
     Dates: start: 20021008, end: 20030102
  5. NAPROXIN [Concomitant]
  6. AMADRYL [Concomitant]
  7. ACTOS [Concomitant]

REACTIONS (7)
  - WEIGHT DECREASED [None]
  - PERSONALITY CHANGE [None]
  - WITHDRAWAL SYNDROME [None]
  - DISABILITY [None]
  - INSOMNIA [None]
  - PAIN [None]
  - SOCIAL AVOIDANT BEHAVIOUR [None]
